FAERS Safety Report 15111035 (Version 2)
Quarter: 2018Q3

REPORT INFORMATION
  Report Type: Report from Study
  Country: US (occurrence: US)
  Receive Date: 20180705
  Receipt Date: 20180727
  Transmission Date: 20181010
  Serious: No
  Sender: FDA-Public Use
  Company Number: PHEH2018US027645

PATIENT
  Sex: Female

DRUGS (1)
  1. COSENTYX [Suspect]
     Active Substance: SECUKINUMAB
     Indication: PSORIASIS
     Dosage: 300 MG (2 PEN), Q4W
     Route: 058
     Dates: start: 20180221

REACTIONS (4)
  - Vulvovaginal pain [Unknown]
  - Anxiety [Unknown]
  - Abdominal pain upper [Unknown]
  - Vulvovaginal pruritus [Unknown]
